FAERS Safety Report 19808473 (Version 1)
Quarter: 2021Q3

REPORT INFORMATION
  Report Type: Spontaneous
  Country: US (occurrence: US)
  Receive Date: 20210908
  Receipt Date: 20210908
  Transmission Date: 20211014
  Serious: Yes (Disabling)
  Sender: FDA-Public Use
  Company Number: None

PATIENT
  Age: 84 Year
  Sex: Female
  Weight: 85.05 kg

DRUGS (23)
  1. SYNTHROID [Concomitant]
     Active Substance: LEVOTHYROXINE SODIUM
  2. IPRATROPIUM INHALER [Concomitant]
     Active Substance: IPRATROPIUM BROMIDE
  3. AMLODIPINE [Concomitant]
     Active Substance: AMLODIPINE BESYLATE
  4. FLUTICASONE PROPIONATE SPRAY [Concomitant]
  5. EZETIMIBE. [Concomitant]
     Active Substance: EZETIMIBE
  6. LORAZEPAM. [Concomitant]
     Active Substance: LORAZEPAM
  7. POTASSIUM CHLORIDE. [Concomitant]
     Active Substance: POTASSIUM CHLORIDE
  8. CITALOPRAM [Concomitant]
     Active Substance: CITALOPRAM HYDROBROMIDE
  9. MULTI VITAMIN [Concomitant]
     Active Substance: VITAMINS
  10. VITAMIN D [Concomitant]
     Active Substance: VITAMIN D NOS
  11. FERROUS GLUCONATE [Concomitant]
     Active Substance: FERROUS GLUCONATE
  12. ASPIRIN 81 MG [Concomitant]
     Active Substance: ASPIRIN
  13. PREDNISONE. [Concomitant]
     Active Substance: PREDNISONE
  14. OMEPRAZOLE. [Concomitant]
     Active Substance: OMEPRAZOLE
  15. HYDRALAZINE [Concomitant]
     Active Substance: HYDRALAZINE HYDROCHLORIDE
  16. CO?ENZYME Q?10 [Concomitant]
  17. BARIUM SULFATE [Suspect]
     Active Substance: BARIUM SULFATE
     Indication: BARIUM SWALLOW
     Dates: start: 20210902, end: 20210902
  18. FAMOTIDINE. [Concomitant]
     Active Substance: FAMOTIDINE
  19. LAMOTRIGINE. [Concomitant]
     Active Substance: LAMOTRIGINE
  20. BENZONATATE. [Concomitant]
     Active Substance: BENZONATATE
  21. MELATONIN 10 MG [Concomitant]
     Active Substance: MELATONIN
  22. MONTELUKAST [Concomitant]
     Active Substance: MONTELUKAST SODIUM
  23. QUETIAPINE. [Concomitant]
     Active Substance: QUETIAPINE

REACTIONS (2)
  - Epistaxis [None]
  - Lethargy [None]

NARRATIVE: CASE EVENT DATE: 20210905
